FAERS Safety Report 9531079 (Version 1)
Quarter: 2013Q2

REPORT INFORMATION
  Report Type: Spontaneous
  Country: US (occurrence: None)
  Receive Date: 20130402
  Receipt Date: 20130402
  Transmission Date: 20140414
  Serious: Yes (Hospitalization, Other)
  Sender: FDA-Public Use
  Company Number: 2013-000251

PATIENT
  Age: 22 Year
  Sex: Female
  Weight: 50.3 kg

DRUGS (1)
  1. LOESTRIN 24 FE [Suspect]
     Indication: CONTRACEPTION
     Route: 048
     Dates: start: 20090521, end: 201212

REACTIONS (4)
  - Speech disorder [None]
  - Transient ischaemic attack [None]
  - Hemiplegia [None]
  - Cerebrovascular accident [None]
